FAERS Safety Report 4341093-X (Version None)
Quarter: 2004Q2

REPORT INFORMATION
  Report Type: 
  Country: None (occurrence: None)
  Receive Date: 20040419
  Receipt Date: 20040127
  Transmission Date: 20050107
  Serious: Yes (Other)
  Sender: FDA-Public Use
  Company Number: PHFR2004IE00800

PATIENT
  Age: 55 Year
  Sex: Male

DRUGS (9)
  1. CLOZARIL [Suspect]
     Indication: SCHIZOPHRENIA
     Dosage: 550MG/DAY
     Route: 048
     Dates: start: 19930715
  2. PHENYTOIN [Interacting]
     Indication: CONVULSION
     Dosage: 100 MG, TID
     Route: 065
  3. RAMIPRIL [Concomitant]
     Indication: CARDIAC FAILURE CONGESTIVE
     Dosage: 10 MG, QD
     Route: 048
  4. FUROSEMIDE [Concomitant]
     Indication: CARDIAC FAILURE CONGESTIVE
     Dosage: 20 MG, QD
     Route: 048
  5. VENLAFAXINE [Concomitant]
     Indication: DEPRESSION
     Dosage: 75MG/DAY/MANE
     Route: 048
  6. OMEPRAZOLE [Concomitant]
     Dosage: 20 MG, QD
     Route: 048
  7. KWELLS [Concomitant]
     Dosage: UNK, QD
     Route: 048
  8. ASPIRIN [Concomitant]
     Dosage: 75 MG, QD
     Route: 048
  9. ATORVASTATIN [Concomitant]
     Dosage: 10 MG, QD/NOCTE
     Route: 048

REACTIONS (9)
  - ANTICONVULSANT DRUG LEVEL DECREASED [None]
  - CARDIAC FAILURE CONGESTIVE [None]
  - CONVULSION [None]
  - DRUG LEVEL DECREASED [None]
  - ECG SIGNS OF MYOCARDIAL ISCHAEMIA [None]
  - EJECTION FRACTION DECREASED [None]
  - OEDEMA PERIPHERAL [None]
  - PLEURAL EFFUSION [None]
  - VENTRICULAR FAILURE [None]
